FAERS Safety Report 4830819-4 (Version None)
Quarter: 2005Q4

REPORT INFORMATION
  Report Type: 
  Country: None (occurrence: None)
  Receive Date: 20051117
  Receipt Date: 20041122
  Transmission Date: 20060501
  Serious: Yes (Hospitalization)
  Sender: FDA-Public Use
  Company Number: US-MERCK-0411USA03639

PATIENT
  Age: 71 Year
  Sex: Female
  Weight: 80 kg

DRUGS (7)
  1. VIOXX [Suspect]
     Route: 048
  2. COVERA-HS [Concomitant]
     Route: 065
  3. ASPIRIN [Concomitant]
     Route: 065
  4. LIPITOR [Concomitant]
     Route: 065
  5. MECLIZINE [Concomitant]
     Route: 065
  6. PREVACID [Concomitant]
     Route: 065
  7. TOPROL-XL [Concomitant]
     Route: 065

REACTIONS (12)
  - ABDOMINAL DISCOMFORT [None]
  - ADVERSE EVENT [None]
  - ARRHYTHMIA [None]
  - BACK PAIN [None]
  - BALANCE DISORDER [None]
  - DYSPNOEA [None]
  - HYPERCHOLESTEROLAEMIA [None]
  - HYPERTENSION [None]
  - MENIERE'S DISEASE [None]
  - OTITIS MEDIA [None]
  - POLYTRAUMATISM [None]
  - URINARY TRACT INFECTION [None]
